FAERS Safety Report 9538469 (Version 1)
Quarter: 2013Q2

REPORT INFORMATION
  Report Type: Spontaneous
  Country: US (occurrence: None)
  Receive Date: 20130507
  Receipt Date: 20130507
  Transmission Date: 20140414
  Serious: No
  Sender: FDA-Public Use
  Company Number: PHEH2013US002805

PATIENT
  Age: 71 Year
  Sex: Female

DRUGS (7)
  1. AFINITOR ( RAD) UNKNOWN [Suspect]
     Indication: NEOPLASM MALIGNANT
     Route: 048
  2. AMLODIPIN BESILAT ( AMLODIPINE BESILATE) [Concomitant]
  3. ESTRADIOL ( ESTRADIOL) [Concomitant]
  4. ATENOLOL ( ATENOLOL) [Concomitant]
  5. LOSARTAN ( LOSARTAN) [Concomitant]
  6. LOPERAMIDE HYDROCHLORIDE ( LOPERAMIDE HYDROCHLORIDE) [Concomitant]
  7. MULTI-VIT ( VITAMINS NOS) [Concomitant]

REACTIONS (2)
  - Abdominal discomfort [None]
  - Infection [None]
